FAERS Safety Report 4895841-0 (Version None)
Quarter: 2006Q1

REPORT INFORMATION
  Report Type: 
  Country: None (occurrence: None)
  Receive Date: 20060125
  Receipt Date: 20060116
  Transmission Date: 20060701
  Serious: Yes (Other)
  Sender: FDA-Public Use
  Company Number: 2006008804

PATIENT
  Age: 52 Year
  Sex: Male

DRUGS (2)
  1. NORVASC [Suspect]
     Indication: ILL-DEFINED DISORDER
     Dosage: 5 MG, ORAL
     Route: 048
  2. AMARYL [Concomitant]

REACTIONS (1)
  - BLOOD CREATININE INCREASED [None]
